FAERS Safety Report 9731961 (Version 2)
Quarter: 2013Q4

REPORT INFORMATION
  Report Type: Spontaneous
  Country: FR (occurrence: FR)
  Receive Date: 20131205
  Receipt Date: 20131205
  Transmission Date: 20140711
  Serious: Yes (Hospitalization)
  Sender: FDA-Public Use
  Company Number: FR-009507513-1311FRA003199

PATIENT
  Age: 64 Year
  Sex: Female
  Weight: 72 kg

DRUGS (6)
  1. JANUVIA [Suspect]
     Indication: TYPE 2 DIABETES MELLITUS
     Dosage: 1 DF, QAM
     Route: 048
     Dates: start: 20080901
  2. STAGID [Concomitant]
     Indication: TYPE 2 DIABETES MELLITUS
     Dosage: 0.5 DF, TID
     Dates: start: 20080901
  3. TAHOR [Concomitant]
     Dates: start: 2008
  4. PLAVIX [Concomitant]
     Indication: ARTERITIS
     Dosage: 1 DF, QD
     Dates: start: 20100210
  5. NAFTIDROFURYL [Concomitant]
     Indication: ARTERITIS
     Dosage: 1 DF, QD
     Dates: start: 20110512
  6. MINIRIN [Concomitant]

REACTIONS (1)
  - Amyloidosis [Unknown]
